FAERS Safety Report 8492345-3 (Version None)
Quarter: 2012Q3

REPORT INFORMATION
  Report Type: 
  Country: None (occurrence: None)
  Receive Date: 20120706
  Receipt Date: 20120628
  Transmission Date: 20120928
  Serious: Yes (Other)
  Sender: FDA-Public Use
  Company Number: US-ROCHE-1056858

PATIENT
  Sex: Female
  Weight: 61.29 kg

DRUGS (2)
  1. XELODA [Suspect]
     Indication: BREAST CANCER METASTATIC
     Dosage: 1500 MG
     Route: 048
     Dates: start: 20111221, end: 20120401
  2. COUMADIN [Concomitant]
     Indication: PULMONARY THROMBOSIS
     Route: 048
     Dates: start: 20120312

REACTIONS (6)
  - PYREXIA [None]
  - DIARRHOEA [None]
  - COLITIS [None]
  - DECREASED APPETITE [None]
  - PULMONARY THROMBOSIS [None]
  - DEHYDRATION [None]
